FAERS Safety Report 23541676 (Version 1)
Quarter: 2024Q1

REPORT INFORMATION
  Report Type: Spontaneous
  Country: US (occurrence: US)
  Receive Date: 20240219
  Receipt Date: 20240219
  Transmission Date: 20240410
  Serious: No
  Sender: FDA-Public Use
  Company Number: US-Axellia-004632

PATIENT
  Sex: Female

DRUGS (1)
  1. VANCOMYCIN [Suspect]
     Active Substance: VANCOMYCIN
     Indication: Product used for unknown indication
     Dates: start: 202212

REACTIONS (5)
  - Drug ineffective [Unknown]
  - Retching [Unknown]
  - Weight decreased [Unknown]
  - Taste disorder [Unknown]
  - Dysphagia [Unknown]
